FAERS Safety Report 24382180 (Version 5)
Quarter: 2025Q1

REPORT INFORMATION
  Report Type: Report from Study
  Country: CA (occurrence: CA)
  Receive Date: 20241001
  Receipt Date: 20250203
  Transmission Date: 20250409
  Serious: Yes (Other)
  Sender: AMGEN
  Company Number: CA-AMGEN-CANSL2024187719

PATIENT
  Age: 69 Year
  Sex: Female

DRUGS (3)
  1. WEZLANA [Suspect]
     Active Substance: USTEKINUMAB-AUUB
     Indication: Hidradenitis
     Dosage: 90 MILLIGRAM, Q8WK
     Route: 065
     Dates: start: 20240812, end: 2024
  2. WEZLANA [Suspect]
     Active Substance: USTEKINUMAB-AUUB
     Indication: Off label use
     Dosage: 90 MILLIGRAM, Q3MO (EVERY 3 MONTHS)
     Route: 065
     Dates: start: 202409
  3. WEZLANA [Suspect]
     Active Substance: USTEKINUMAB-AUUB
     Dosage: 90 MILLIGRAM, Q8WK
     Route: 065

REACTIONS (2)
  - Hidradenitis [Not Recovered/Not Resolved]
  - Off label use [Unknown]

NARRATIVE: CASE EVENT DATE: 20240801
